FAERS Safety Report 6366582-8 (Version None)
Quarter: 2009Q3

REPORT INFORMATION
  Report Type: 
  Country: None (occurrence: None)
  Receive Date: 20090921
  Receipt Date: 20090909
  Transmission Date: 20100115
  Serious: Yes (Other)
  Sender: FDA-Public Use
  Company Number: IT-JNJFOC-20090903653

PATIENT
  Sex: Female

DRUGS (2)
  1. INFLIXIMAB [Suspect]
     Indication: RHEUMATOID ARTHRITIS
     Dosage: 3-5 MG/KG WAS ADMINISTERED AT WEEKS 0, 2, 6 THEN EVERY 6-8 WEEKS FOR 3 MONTHS
     Route: 042
  2. METHOTREXATE [Concomitant]

REACTIONS (1)
  - COLITIS ULCERATIVE [None]
